FAERS Safety Report 21978045 (Version 1)
Quarter: 2023Q1

REPORT INFORMATION
  Report Type: Spontaneous
  Country: US (occurrence: None)
  Receive Date: 20230208
  Receipt Date: 20230208
  Transmission Date: 20230417
  Serious: No
  Sender: FDA-Public Use
  Company Number: None

PATIENT
  Sex: Female

DRUGS (1)
  1. ENBREL [Suspect]
     Active Substance: ETANERCEPT
     Indication: Polyarthritis
     Dosage: 50MG OTHER SUBCUTANEOUS
     Route: 058
     Dates: start: 202301, end: 20230201

REACTIONS (4)
  - Injection site erythema [None]
  - Injection site pruritus [None]
  - Injection site pain [None]
  - Injection site swelling [None]
